FAERS Safety Report 15988773 (Version 9)
Quarter: 2019Q3

REPORT INFORMATION
  Report Type: Report from Study
  Country: US (occurrence: US)
  Receive Date: 20190221
  Receipt Date: 20190808
  Transmission Date: 20191004
  Serious: Yes (Other)
  Sender: FDA-Public Use
  Company Number: US-TESARO-2019-TSO00531-US

PATIENT
  Age: 75 Year
  Sex: Female

DRUGS (8)
  1. ZEJULA [Suspect]
     Active Substance: NIRAPARIB
     Dosage: 200 MG, QD AT 9PM WITHOUT FOOD
     Route: 048
     Dates: start: 20190320, end: 20190409
  2. LOVENOX [Concomitant]
     Active Substance: ENOXAPARIN SODIUM
     Indication: PRODUCT USED FOR UNKNOWN INDICATION
     Dosage: UNK
  3. TYLENOL [Concomitant]
     Active Substance: ACETAMINOPHEN
     Indication: PAIN
     Dosage: UNK, PRN
  4. ELIQUIS [Concomitant]
     Active Substance: APIXABAN
     Indication: DEEP VEIN THROMBOSIS
     Dosage: 5 MG, BID
  5. ZEJULA [Suspect]
     Active Substance: NIRAPARIB
     Dosage: 300 MG, QD
     Route: 065
     Dates: start: 20190226, end: 20190319
  6. ZEJULA [Suspect]
     Active Substance: NIRAPARIB
     Dosage: 200 MG, QPM W/O FOOD
     Dates: start: 20190418, end: 201906
  7. COMPAZINE                          /00013304/ [Concomitant]
     Active Substance: PROCHLORPERAZINE MALEATE
     Indication: PRODUCT USED FOR UNKNOWN INDICATION
     Dosage: 10 MG, UNK
  8. ZEJULA [Suspect]
     Active Substance: NIRAPARIB
     Indication: OVARIAN CANCER
     Dosage: 200 MG, QPM
     Route: 065
     Dates: start: 20190123, end: 20190225

REACTIONS (34)
  - Candida infection [Unknown]
  - Tongue dry [Unknown]
  - Infection [Unknown]
  - Carbohydrate antigen 125 increased [Unknown]
  - Anaemia [Recovering/Resolving]
  - Diarrhoea [Recovered/Resolved]
  - Drug ineffective [Unknown]
  - Back pain [Recovered/Resolved]
  - Headache [Recovering/Resolving]
  - Deep vein thrombosis [Unknown]
  - Sinus disorder [Unknown]
  - Abdominal pain upper [Not Recovered/Not Resolved]
  - Fatigue [Unknown]
  - Urethral obstruction [Unknown]
  - Thrombophlebitis [Unknown]
  - Product dose omission [Unknown]
  - Flank pain [Unknown]
  - Change of bowel habit [Unknown]
  - Phlebitis [Unknown]
  - Nodule [Unknown]
  - Asthenia [Recovering/Resolving]
  - Vomiting [Recovered/Resolved]
  - Nausea [Recovered/Resolved]
  - Hydronephrosis [Unknown]
  - Malignant neoplasm progression [Unknown]
  - Pain in extremity [Unknown]
  - Dry mouth [Not Recovered/Not Resolved]
  - Heart rate increased [Not Recovered/Not Resolved]
  - Oral pain [Recovered/Resolved]
  - Night sweats [Unknown]
  - Allergic cough [Recovered/Resolved]
  - Nasopharyngitis [Recovered/Resolved]
  - Cognitive disorder [Unknown]
  - Weight decreased [Unknown]

NARRATIVE: CASE EVENT DATE: 201905
